FAERS Safety Report 9298306 (Version 2)
Quarter: 2013Q3

REPORT INFORMATION
  Report Type: Spontaneous
  Country: US (occurrence: None)
  Receive Date: 20121002
  Receipt Date: 20130815
  Transmission Date: 20140515
  Serious: Yes (Other)
  Sender: FDA-Public Use
  Company Number: ADR-2012-01631

PATIENT
  Sex: Male

DRUGS (4)
  1. BACLOFEN INTRATHECAL [Suspect]
     Indication: PAIN
  2. BACLOFEN INTRATHECAL [Suspect]
     Indication: PAIN
  3. CLONIDINE [Concomitant]
  4. DILAUDID (HYDROMORPHONE) [Concomitant]

REACTIONS (12)
  - Device malfunction [None]
  - Pain in extremity [None]
  - Back pain [None]
  - Musculoskeletal pain [None]
  - Back pain [None]
  - Pain [None]
  - Erythema [None]
  - Swelling [None]
  - Pain in extremity [None]
  - Musculoskeletal pain [None]
  - Back pain [None]
  - Seroma [None]
